FAERS Safety Report 6929813-9 (Version None)
Quarter: 2010Q3

REPORT INFORMATION
  Report Type: 
  Country: None (occurrence: None)
  Receive Date: 20100818
  Receipt Date: 20100804
  Transmission Date: 20110219
  Serious: Yes (Other)
  Sender: FDA-Public Use
  Company Number: PHHY2010US51383

PATIENT
  Sex: Female

DRUGS (7)
  1. RECLAST [Suspect]
     Dosage: UNK
     Dates: start: 20100517
  2. SYNTHROID [Concomitant]
     Dosage: 75 MCG
  3. GABAPENTIN [Concomitant]
     Dosage: 300 MG, TID
  4. CELEBREX [Concomitant]
     Dosage: 10 MG, QD
  5. NIACIN [Concomitant]
     Dosage: 500 MG
  6. CALCIUM [Concomitant]
     Dosage: 600 MG, BID
  7. VITAMIN D [Concomitant]
     Dosage: UNK

REACTIONS (2)
  - ANKLE FRACTURE [None]
  - DRUG INEFFECTIVE [None]
